FAERS Safety Report 7830801-9 (Version None)
Quarter: 2011Q4

REPORT INFORMATION
  Report Type: 
  Country: None (occurrence: None)
  Receive Date: 20111021
  Receipt Date: 20111019
  Transmission Date: 20120403
  Serious: Yes (Life-Threatening, Hospitalization, Other)
  Sender: FDA-Public Use
  Company Number: RS-GLAXOSMITHKLINE-A0949788A

PATIENT
  Sex: Male
  Weight: 105 kg

DRUGS (9)
  1. BLINDED STUDY MEDICATION [Suspect]
     Indication: THROMBOSIS PROPHYLAXIS
     Route: 048
     Dates: start: 20101122, end: 20110616
  2. LASIX [Concomitant]
  3. DIGOXIN [Suspect]
     Indication: ATRIAL FIBRILLATION
     Route: 048
     Dates: start: 20110608
  4. CONCOR [Concomitant]
  5. DILACOR XR [Concomitant]
  6. ENALAPRIL MALEATE [Concomitant]
  7. VASILIP [Concomitant]
  8. NORVASC [Concomitant]
  9. PANTOPRAZOLE [Concomitant]

REACTIONS (10)
  - ASTHENIA [None]
  - WHEEZING [None]
  - CARDIAC MURMUR [None]
  - BRADYARRHYTHMIA [None]
  - HAEMATOCRIT DECREASED [None]
  - NAUSEA [None]
  - HAEMOGLOBIN DECREASED [None]
  - TOXICITY TO VARIOUS AGENTS [None]
  - PALLOR [None]
  - RED BLOOD CELL COUNT DECREASED [None]
